FAERS Safety Report 4975012-X (Version None)
Quarter: 2006Q2

REPORT INFORMATION
  Report Type: 
  Country: None (occurrence: None)
  Receive Date: 20060418
  Receipt Date: 20060407
  Transmission Date: 20061013
  Serious: Yes (Hospitalization, Other)
  Sender: FDA-Public Use
  Company Number: JAFRA38117

PATIENT
  Sex: Male
  Weight: 3.4 kg

DRUGS (6)
  1. HALDOL [Suspect]
     Route: 064
  2. HALDOL [Suspect]
     Route: 048
  3. LARGACTIL [Suspect]
     Indication: DRUG USE FOR UNKNOWN INDICATION
     Route: 064
  4. LARGACTIL [Suspect]
     Route: 048
  5. ARTANE [Concomitant]
     Indication: DRUG USE FOR UNKNOWN INDICATION
     Route: 064
  6. ARTANE [Concomitant]
     Route: 048

REACTIONS (10)
  - AGITATION [None]
  - CRYING [None]
  - DRUG EXPOSURE DURING PREGNANCY [None]
  - DRUG WITHDRAWAL SYNDROME [None]
  - FEEDING DISORDER NEONATAL [None]
  - FORCEPS DELIVERY [None]
  - HYPERTONIA NEONATAL [None]
  - HYPOTONIA NEONATAL [None]
  - MOANING [None]
  - THREATENED LABOUR [None]
